FAERS Safety Report 7357901-4 (Version None)
Quarter: 2011Q1

REPORT INFORMATION
  Report Type: 
  Country: None (occurrence: None)
  Receive Date: 20110317
  Receipt Date: 20110307
  Transmission Date: 20110831
  Serious: Yes (Hospitalization, Other)
  Sender: FDA-Public Use
  Company Number: IE-SANOFI-AVENTIS-2010SA074095

PATIENT
  Age: 70 Year
  Sex: Female

DRUGS (13)
  1. WARFARIN [Concomitant]
     Dates: start: 20101118
  2. PANTOPRAZOLE [Concomitant]
     Dates: start: 20101113
  3. ROSUVASTATIN [Concomitant]
  4. ALL OTHER THERAPEUTIC PRODUCTS [Concomitant]
     Indication: SURGERY
  5. WARFARIN [Concomitant]
     Indication: SURGERY
  6. WARFARIN [Concomitant]
     Dates: start: 20101118
  7. ASPIRIN [Concomitant]
     Indication: PLATELET DISORDER
  8. CARDICOR [Concomitant]
  9. ALL OTHER THERAPEUTIC PRODUCTS [Concomitant]
     Indication: ATRIAL FIBRILLATION
  10. FLUCLOXACILLIN [Suspect]
     Indication: CARDIAC PACEMAKER INSERTION
     Route: 048
     Dates: start: 20101117, end: 20101121
  11. MULTAQ [Suspect]
     Indication: ATRIAL FIBRILLATION
     Route: 048
     Dates: start: 20101117, end: 20101120
  12. CLOPIDOGREL [Concomitant]
     Dates: start: 20101113
  13. WARFARIN [Concomitant]
     Indication: ATRIAL FIBRILLATION

REACTIONS (8)
  - NAUSEA [None]
  - HEPATORENAL SYNDROME [None]
  - LETHARGY [None]
  - PYREXIA [None]
  - TACHYCARDIA [None]
  - VOMITING [None]
  - HEPATIC ENZYME INCREASED [None]
  - RENAL FAILURE [None]
